FAERS Safety Report 7666918-1 (Version None)
Quarter: 2011Q3

REPORT INFORMATION
  Report Type: 
  Country: None (occurrence: None)
  Receive Date: 20110806
  Receipt Date: 20110425
  Transmission Date: 20111222
  Serious: No
  Sender: FDA-Public Use
  Company Number: US-ABBOTT-11P-163-0721497-00

PATIENT
  Sex: Male
  Weight: 97.61 kg

DRUGS (8)
  1. INSULIN [Concomitant]
     Indication: PRODUCT USED FOR UNKNOWN INDICATION
     Dosage: INSULIN PUMP CONTINUOUS INFUSION
  2. NIASPAN [Suspect]
     Indication: FAMILIAL RISK FACTOR
  3. LISINOPRIL [Concomitant]
  4. ZETIA [Concomitant]
     Indication: PRODUCT USED FOR UNKNOWN INDICATION
  5. LISINOPRIL [Concomitant]
     Indication: PRODUCT USED FOR UNKNOWN INDICATION
  6. NIASPAN [Suspect]
     Indication: BLOOD TRIGLYCERIDES INCREASED
     Dosage: AT HOUR OF SLEEP
     Dates: start: 20110411
  7. ASPIRIN [Concomitant]
     Indication: PRODUCT USED FOR UNKNOWN INDICATION
  8. VIT D [Concomitant]
     Indication: PRODUCT USED FOR UNKNOWN INDICATION

REACTIONS (7)
  - SOMNOLENCE [None]
  - FLUSHING [None]
  - SKIN WARM [None]
  - ERYTHEMA [None]
  - PARAESTHESIA [None]
  - DIZZINESS [None]
  - PRURITUS [None]
